FAERS Safety Report 9161987 (Version 1)
Quarter: 2013Q1

REPORT INFORMATION
  Report Type: Spontaneous
  Country: IN (occurrence: None)
  Receive Date: 20130220
  Receipt Date: 20130220
  Transmission Date: 20140127
  Serious: Yes (Other)
  Sender: FDA-Public Use
  Company Number: 2013P1002194

PATIENT
  Age: 55 Year
  Sex: Male

DRUGS (7)
  1. EPINEPHRINE\LIDOCAINE HYDROCHLORIDE\SODIUM BICARBONATE [Suspect]
     Indication: LOCAL ANAESTHESIA
  2. BUPIVACAINE [Suspect]
  3. RANITIDINE [Concomitant]
  4. METOCLOPRAMIDE [Concomitant]
  5. DIAZEPAM [Concomitant]
  6. ATORVASTATIN [Concomitant]
  7. AMLODIPINE [Concomitant]

REACTIONS (4)
  - Dysphonia [None]
  - Speech disorder [None]
  - Hypertension [None]
  - Heart rate increased [None]
